FAERS Safety Report 5866602-0 (Version None)
Quarter: 2008Q3

REPORT INFORMATION
  Report Type: 
  Country: None (occurrence: None)
  Receive Date: 20080827
  Receipt Date: 20080820
  Transmission Date: 20090109
  Serious: Yes (Hospitalization)
  Sender: FDA-Public Use
  Company Number: TCI2008A03407

PATIENT
  Age: 71 Year
  Sex: Male

DRUGS (7)
  1. ACTOS [Suspect]
     Indication: TYPE 2 DIABETES MELLITUS
     Dosage: 30 MG (30 MG, 1 IN 1 D), PER ORAL
     Route: 048
     Dates: end: 20080620
  2. BASEN TABLETS 0.2 (VOGLIBOSE) [Concomitant]
  3. EUGLUCON (GLIBENCLAMI-E) [Concomitant]
  4. ALLOPURINOL [Concomitant]
  5. LASIX [Concomitant]
  6. AMLODIN (AMLODIFINE BESILATE) [Concomitant]
  7. OLMESARTAN MEDOXOMIL [Concomitant]

REACTIONS (8)
  - CARDIAC FAILURE [None]
  - DECREASED APPETITE [None]
  - LEFT ATRIAL DILATATION [None]
  - OEDEMA [None]
  - PLEURAL EFFUSION [None]
  - VENTRICULAR HYPOKINESIA [None]
  - VOMITING [None]
  - WEIGHT INCREASED [None]
